FAERS Safety Report 15775793 (Version 1)
Quarter: 2018Q4

REPORT INFORMATION
  Report Type: Spontaneous
  Country: CN (occurrence: CN)
  Receive Date: 20181231
  Receipt Date: 20181231
  Transmission Date: 20190205
  Serious: Yes (Other)
  Sender: FDA-Public Use
  Company Number: CN-MACLEODS PHARMACEUTICALS US LTD-MAC2018019447

PATIENT

DRUGS (4)
  1. PENICILLIN G [Suspect]
     Active Substance: PENICILLIN G
     Indication: CUTANEOUS ANTHRAX
     Dosage: UNK, 4 ? 4 MILLION U/DAY
     Route: 065
  2. LEVOFLOXACIN. [Suspect]
     Active Substance: LEVOFLOXACIN
     Indication: CUTANEOUS ANTHRAX
     Dosage: 400 MILLIGRAM, QD
     Route: 065
  3. METHYLPREDNISOLONE. [Suspect]
     Active Substance: METHYLPREDNISOLONE
     Indication: CUTANEOUS ANTHRAX
     Dosage: 40 MILLIGRAM, QD
     Route: 065
  4. GLYCYRRHIZIN [Suspect]
     Active Substance: GLYCYRRHIZIN
     Indication: CUTANEOUS ANTHRAX
     Dosage: 160 MILLIGRAM, QD
     Route: 065

REACTIONS (2)
  - Ulcer haemorrhage [Recovering/Resolving]
  - Oedema [Unknown]
